FAERS Safety Report 18553797 (Version 1)
Quarter: 2020Q4

REPORT INFORMATION
  Report Type: Report from Study
  Country: None (occurrence: CA)
  Receive Date: 20201127
  Receipt Date: 20201127
  Transmission Date: 20210114
  Serious: Yes (Hospitalization, Other)
  Sender: FDA-Public Use
  Company Number: CA-ABBVIE-20K-028-3638446-00

PATIENT
  Sex: Female
  Weight: 60 kg

DRUGS (3)
  1. HUMIRA [Suspect]
     Active Substance: ADALIMUMAB
     Route: 058
  2. HUMIRA [Suspect]
     Active Substance: ADALIMUMAB
     Indication: PSORIATIC ARTHROPATHY
     Route: 058
     Dates: start: 20150422
  3. HUMIRA [Suspect]
     Active Substance: ADALIMUMAB
     Route: 058

REACTIONS (7)
  - Abdominal discomfort [Unknown]
  - Acute kidney injury [Unknown]
  - Illness [Unknown]
  - Hypertension [Unknown]
  - Kidney infection [Unknown]
  - Pyelonephritis [Not Recovered/Not Resolved]
  - Irritable bowel syndrome [Unknown]

NARRATIVE: CASE EVENT DATE: 2020
